FAERS Safety Report 24612026 (Version 6)
Quarter: 2025Q2

REPORT INFORMATION
  Report Type: Spontaneous
  Country: US (occurrence: US)
  Receive Date: 20241113
  Receipt Date: 20250407
  Transmission Date: 20250716
  Serious: Yes (Life-Threatening)
  Sender: ROCHE
  Company Number: US-ROCHE-10000129745

PATIENT
  Sex: Female

DRUGS (1)
  1. XOLAIR [Suspect]
     Active Substance: OMALIZUMAB
     Indication: Anaphylactic shock
     Dosage: STRENGTH 300MG/2ML
     Route: 058
     Dates: start: 202410

REACTIONS (3)
  - Mast cell activation syndrome [Unknown]
  - Anaphylactic reaction [Unknown]
  - Off label use [Unknown]
